FAERS Safety Report 4658481-4 (Version None)
Quarter: 2005Q2

REPORT INFORMATION
  Report Type: 
  Country: None (occurrence: None)
  Receive Date: 20050511
  Receipt Date: 20050509
  Transmission Date: 20051028
  Serious: Yes (Hospitalization)
  Sender: FDA-Public Use
  Company Number: FR-GLAXOSMITHKLINE-B0380233A

PATIENT
  Age: 35 Year
  Sex: Male

DRUGS (5)
  1. CLAMOXYL [Suspect]
     Indication: ILL-DEFINED DISORDER
     Dosage: 1G UNKNOWN
     Route: 048
     Dates: end: 20040813
  2. TOPALGIC ( FRANCE ) [Suspect]
     Indication: BACK PAIN
     Route: 050
     Dates: start: 20040810, end: 20040817
  3. CATAPRES [Concomitant]
     Route: 048
     Dates: start: 20040809, end: 20040814
  4. MOPRAL [Concomitant]
     Route: 048
     Dates: end: 20040817
  5. ATARAX 25 [Concomitant]
     Dosage: 25MG TWICE PER DAY
     Route: 048
     Dates: start: 20040813, end: 20040814

REACTIONS (2)
  - COMPLEX PARTIAL SEIZURES [None]
  - GRAND MAL CONVULSION [None]
